FAERS Safety Report 5447694-X (Version None)
Quarter: 2007Q3

REPORT INFORMATION
  Report Type: 
  Country: None (occurrence: None)
  Receive Date: 20070910
  Receipt Date: 20070904
  Transmission Date: 20080115
  Serious: Yes (Other)
  Sender: FDA-Public Use
  Company Number: IE-MERCK-0709GBR00021

PATIENT
  Sex: Female

DRUGS (5)
  1. FOSAMAX PLUS D [Suspect]
     Indication: OSTEOPOROSIS
     Route: 048
     Dates: start: 20070601
  2. ESCITALOPRAM OXALATE [Concomitant]
     Route: 065
  3. DICLOFENAC [Concomitant]
     Route: 065
  4. FLUCONAZOLE [Concomitant]
     Route: 065
  5. ESOMEPRAZOLE MAGNESIUM [Concomitant]
     Route: 065

REACTIONS (1)
  - PARAESTHESIA [None]
